FAERS Safety Report 18300566 (Version 3)
Quarter: 2021Q1

REPORT INFORMATION
  Report Type: Report from Study
  Country: US (occurrence: US)
  Receive Date: 20200923
  Receipt Date: 20210125
  Transmission Date: 20210419
  Serious: No
  Sender: FDA-Public Use
  Company Number: US-SHIRE-US202030764

PATIENT
  Age: 74 Year
  Sex: Female

DRUGS (3)
  1. 643 (LANADELUMAB) [Suspect]
     Active Substance: LANADELUMAB
     Indication: HEREDITARY ANGIOEDEMA
     Dosage: 30 MG/2ML, Q2WEEKS
     Route: 058
     Dates: start: 20200513
  2. FIRAZYR [Suspect]
     Active Substance: ICATIBANT ACETATE
     Indication: HEREDITARY ANGIOEDEMA
     Dosage: 30MG/2ML, AS REQ^D
     Route: 058
     Dates: start: 20160802, end: 20200522
  3. FIRAZYR [Suspect]
     Active Substance: ICATIBANT ACETATE
     Indication: HEREDITARY ANGIOEDEMA
     Dosage: 30MG/2ML, AS REQ^D
     Route: 058
     Dates: start: 20160802, end: 20200522

REACTIONS (4)
  - Chest discomfort [Unknown]
  - Hereditary angioedema [Recovered/Resolved]
  - Dyspnoea [Unknown]
  - Drug hypersensitivity [Unknown]

NARRATIVE: CASE EVENT DATE: 20200918
